FAERS Safety Report 13139165 (Version 9)
Quarter: 2018Q1

REPORT INFORMATION
  Report Type: Report from Study
  Country: KR (occurrence: KR)
  Receive Date: 20170123
  Receipt Date: 20180130
  Transmission Date: 20180508
  Serious: Yes (Death, Hospitalization)
  Sender: FDA-Public Use
  Company Number: KR-PFIZER INC-2017013143

PATIENT
  Age: 50 Year
  Sex: Male
  Weight: 67 kg

DRUGS (16)
  1. OXALIPLATIN. [Suspect]
     Active Substance: OXALIPLATIN
     Dosage: 130 MG/M2 (ACTUAL DOSE 221 MG), CYCLIC
     Route: 042
     Dates: end: 20161226
  2. SODIUM BICARBONATE. [Concomitant]
     Active Substance: SODIUM BICARBONATE
     Indication: ORAL CANDIDIASIS
     Dosage: 10 G, 1X/DAY
     Route: 048
     Dates: start: 20161117, end: 20161117
  3. CAPECITABINE. [Suspect]
     Active Substance: CAPECITABINE
     Dosage: 1000 MG/M2, (ACTUAL DOSE 1750 MG), 2X/DAY, CYCLIC
     Route: 048
     Dates: end: 20170102
  4. SOLIFENACIN SUCCINATE. [Concomitant]
     Active Substance: SOLIFENACIN SUCCINATE
     Indication: HYDROCELE
     Dosage: 5 MG, 1X/DAY
     Route: 048
     Dates: start: 20161117, end: 20161122
  5. CHLORPHENIRAMINE MALEATE. [Concomitant]
     Active Substance: CHLORPHENIRAMINE MALEATE
     Indication: RHINITIS ALLERGIC
     Dosage: 2 MG, 1X/DAY
     Route: 042
     Dates: start: 20161117, end: 20161122
  6. CAPECITABINE. [Suspect]
     Active Substance: CAPECITABINE
     Indication: OESOPHAGEAL ADENOCARCINOMA
     Dosage: 1000 MG/M2 (ACTUAL DOSE 1750 MG), 2X/DAY, CYCLIC
     Route: 048
     Dates: start: 20161110
  7. OXALIPLATIN. [Suspect]
     Active Substance: OXALIPLATIN
     Dosage: UNK
  8. BENZYDAMINE HYDROCHLORIDE [Concomitant]
     Active Substance: BENZYDAMINE HYDROCHLORIDE
     Indication: ORAL CANDIDIASIS
     Dosage: 1100 ML, 3X/DAY
     Route: 048
     Dates: start: 20161117, end: 20161117
  9. KABITWIN PERI [Concomitant]
     Indication: NUTRITIONAL SUPPLEMENTATION
     Dosage: 1000 ML, 1X/DAY
     Route: 042
     Dates: start: 20161117, end: 20161130
  10. OXALIPLATIN. [Suspect]
     Active Substance: OXALIPLATIN
     Dosage: UNK
  11. CHLORPHENIRAMINE MALEATE. [Concomitant]
     Active Substance: CHLORPHENIRAMINE MALEATE
     Dosage: 8 MG, 1X/DAY
     Route: 042
     Dates: start: 20161118, end: 20161118
  12. OXALIPLATIN. [Suspect]
     Active Substance: OXALIPLATIN
     Indication: OESOPHAGEAL ADENOCARCINOMA
     Dosage: 130 MG/M2 (ACTUAL DOSE 162.5 MG), CYCLIC
     Route: 042
     Dates: start: 20161110
  13. FUROSEMIDE. [Concomitant]
     Active Substance: FUROSEMIDE
     Indication: PROPHYLAXIS
     Dosage: 20 MG, 1X/DAY
     Route: 042
     Dates: start: 20161117, end: 20161118
  14. OXALIPLATIN. [Suspect]
     Active Substance: OXALIPLATIN
     Dosage: UNK
  15. OXALIPLATIN. [Suspect]
     Active Substance: OXALIPLATIN
     Dosage: UNK
  16. TAMSULOSIN HYDROCHLORIDE. [Concomitant]
     Active Substance: TAMSULOSIN HYDROCHLORIDE
     Indication: HYDROCELE
     Dosage: 0.2 MG, 1X/DAY
     Route: 048
     Dates: start: 20161117, end: 20161122

REACTIONS (1)
  - Septic shock [Fatal]

NARRATIVE: CASE EVENT DATE: 20170104
